FAERS Safety Report 17886706 (Version 6)
Quarter: 2021Q2

REPORT INFORMATION
  Report Type: Report from Study
  Country: None (occurrence: JP)
  Receive Date: 20200612
  Receipt Date: 20210629
  Transmission Date: 20210717
  Serious: Yes (Hospitalization)
  Sender: FDA-Public Use
  Company Number: JP-ABBVIE-20K-087-3374772-00

PATIENT
  Age: 78 Year
  Sex: Male
  Weight: 75 kg

DRUGS (5)
  1. ROTIGOTINE [Concomitant]
     Active Substance: ROTIGOTINE
     Indication: PARKINSON^S DISEASE
     Route: 062
  2. CARBIDOPA AND LEVODOPA [Concomitant]
     Active Substance: CARBIDOPA\LEVODOPA
     Route: 048
  3. DUODOPA [Suspect]
     Active Substance: CARBIDOPA\LEVODOPA
     Indication: PARKINSON^S DISEASE
     Route: 050
     Dates: start: 20200131, end: 2020
  4. CARBIDOPA AND LEVODOPA [Concomitant]
     Active Substance: CARBIDOPA\LEVODOPA
     Indication: PARKINSON^S DISEASE
     Dosage: CARBIDOPA HYDRATE AND LEVODOPA
     Route: 048
     Dates: start: 201707
  5. DUODOPA [Suspect]
     Active Substance: CARBIDOPA\LEVODOPA
     Dosage: MD: 11.7 ML, CD: 2.4 ML/HR X 16 HOURS.
     Route: 050
     Dates: start: 20200212

REACTIONS (11)
  - Stoma site erythema [Recovering/Resolving]
  - Stoma site oedema [Recovering/Resolving]
  - Posture abnormal [Unknown]
  - Stoma site discharge [Unknown]
  - Psychiatric symptom [Unknown]
  - Stoma site discharge [Recovered/Resolved]
  - Stoma site reaction [Unknown]
  - Parkinson^s disease [Unknown]
  - Mobility decreased [Unknown]
  - Stoma site pain [Unknown]
  - Stoma site haemorrhage [Recovered/Resolved]

NARRATIVE: CASE EVENT DATE: 2020
